FAERS Safety Report 12632168 (Version 2)
Quarter: 2016Q3

REPORT INFORMATION
  Report Type: Spontaneous
  Country: US (occurrence: US)
  Receive Date: 20160808
  Receipt Date: 20160808
  Transmission Date: 20161109
  Serious: No
  Sender: FDA-Public Use
  Company Number: US-BEH-2016062066

PATIENT
  Sex: Male
  Weight: 74 kg

DRUGS (41)
  1. EULFLEXXA [Concomitant]
  2. PROVENTIL [Concomitant]
     Active Substance: ALBUTEROL
  3. LISINOPRIL. [Concomitant]
     Active Substance: LISINOPRIL
  4. OFLOXACIN. [Concomitant]
     Active Substance: OFLOXACIN
  5. DIPHENHYDRAMINE. [Concomitant]
     Active Substance: DIPHENHYDRAMINE
  6. NITROSTAT [Concomitant]
     Active Substance: NITROGLYCERIN
  7. VENTOLIN [Concomitant]
     Active Substance: ALBUTEROL SULFATE
  8. HIZENTRA [Suspect]
     Active Substance: HUMAN IMMUNOGLOBULIN G
     Indication: IMMUNODEFICIENCY COMMON VARIABLE
     Route: 058
     Dates: start: 20110106
  9. EPIPEN [Concomitant]
     Active Substance: EPINEPHRINE
  10. PEPCID [Concomitant]
     Active Substance: FAMOTIDINE
  11. DIFLUCAN [Concomitant]
     Active Substance: FLUCONAZOLE
  12. SYMBICORT [Concomitant]
     Active Substance: BUDESONIDE\FORMOTEROL FUMARATE DIHYDRATE
  13. ASPIRIN. [Concomitant]
     Active Substance: ASPIRIN
  14. ZENPEP [Concomitant]
     Active Substance: PANCRELIPASE AMYLASE\PANCRELIPASE LIPASE\PANCRELIPASE PROTEASE
  15. LIDOCAINE/PRILOCAINE [Concomitant]
     Active Substance: LIDOCAINE\PRILOCAINE
  16. TYLENOL [Concomitant]
     Active Substance: ACETAMINOPHEN
  17. OMEPRAZOLE. [Concomitant]
     Active Substance: OMEPRAZOLE
  18. SULFASALAZINE. [Concomitant]
     Active Substance: SULFASALAZINE
  19. BACTROBAN [Concomitant]
     Active Substance: MUPIROCIN\MUPIROCIN CALCIUM
  20. ACETAMINOPHEN. [Concomitant]
     Active Substance: ACETAMINOPHEN
  21. MORPHINE [Concomitant]
     Active Substance: MORPHINE
  22. LEVOTHYROXINE. [Concomitant]
     Active Substance: LEVOTHYROXINE
  23. NYSTATIN. [Concomitant]
     Active Substance: NYSTATIN
  24. DONNATAL [Concomitant]
     Active Substance: ATROPINE SULFATE\HYOSCYAMINE SULFATE\PHENOBARBITAL\SCOPOLAMINE HYDROBROMIDE
  25. NASONEX [Concomitant]
     Active Substance: MOMETASONE FUROATE
  26. NABUMETONE. [Concomitant]
     Active Substance: NABUMETONE
  27. TEMAZEPAM. [Concomitant]
     Active Substance: TEMAZEPAM
  28. LIDODERM [Concomitant]
     Active Substance: LIDOCAINE
  29. OXYCONTIN [Concomitant]
     Active Substance: OXYCODONE HYDROCHLORIDE
  30. DEPO-TESTOSTERONE [Concomitant]
     Active Substance: TESTOSTERONE CYPIONATE
  31. ASTELIN [Concomitant]
     Active Substance: AZELASTINE HYDROCHLORIDE
  32. METHYLPHENIDATE. [Concomitant]
     Active Substance: METHYLPHENIDATE
  33. CONCERTA [Concomitant]
     Active Substance: METHYLPHENIDATE HYDROCHLORIDE
  34. HIZENTRA [Suspect]
     Active Substance: HUMAN IMMUNOGLOBULIN G
     Route: 058
     Dates: start: 20110106
  35. L-M-X [Concomitant]
  36. CODEINE [Concomitant]
     Active Substance: CODEINE
  37. AMBIEN [Concomitant]
     Active Substance: ZOLPIDEM TARTRATE
  38. PROMETHAZINE [Concomitant]
     Active Substance: PROMETHAZINE\PROMETHAZINE HYDROCHLORIDE
  39. PREVIDENT [Concomitant]
     Active Substance: SODIUM FLUORIDE
  40. FOLIC ACID. [Concomitant]
     Active Substance: FOLIC ACID
  41. TRETINOIN. [Concomitant]
     Active Substance: TRETINOIN

REACTIONS (1)
  - Infection [Unknown]
